FAERS Safety Report 7056688-2 (Version None)
Quarter: 2010Q4

REPORT INFORMATION
  Report Type: 
  Country: None (occurrence: None)
  Receive Date: 20101021
  Receipt Date: 20101012
  Transmission Date: 20110411
  Serious: Yes (Other)
  Sender: FDA-Public Use
  Company Number: US-AMGEN INC.-QUU443561

PATIENT

DRUGS (5)
  1. NPLATE [Suspect]
     Indication: IDIOPATHIC THROMBOCYTOPENIC PURPURA
     Dosage: 3.8 A?G/KG, UNK
     Dates: start: 20100330, end: 20100827
  2. RITUXIMAB [Concomitant]
     Dosage: UNK UNK, UNK
     Dates: start: 20080711, end: 20080801
  3. LASIX [Concomitant]
  4. GLIPIZIDE [Concomitant]
  5. PERCOCET [Concomitant]

REACTIONS (1)
  - THROMBOCYTOPENIA [None]
